FAERS Safety Report 9989639 (Version 2)
Quarter: 2014Q2

REPORT INFORMATION
  Report Type: Spontaneous
  Country: US (occurrence: None)
  Receive Date: 20131105
  Receipt Date: 20140424
  Transmission Date: 20141212
  Serious: Yes (Hospitalization)
  Sender: FDA-Public Use
  Company Number: CC400157257

PATIENT
  Age: 61 Year
  Sex: Male

DRUGS (10)
  1. DEXTROSE AND SODIUM CHLORIDE [Suspect]
     Indication: PREMEDICATION
     Dates: start: 20120920, end: 20120920
  2. CISPLATIN [Concomitant]
  3. INVESTIGATIONAL DRUG S-1 (TEGAFUR, GIMERACIL + OTERACIL POTASSIUM) [Concomitant]
  4. VICODIN (LORTAB) [Concomitant]
  5. FLOMAX [Concomitant]
  6. ONDANSETRON [Concomitant]
  7. LORAZEPAM [Concomitant]
  8. FOSAPREPITANT [Concomitant]
  9. DEXAMETHASONE [Concomitant]
  10. TAMSULOSIN [Concomitant]

REACTIONS (5)
  - Ascites [None]
  - Dyspnoea [None]
  - Abdominal distension [None]
  - Sinus bradycardia [None]
  - Disease progression [None]
